FAERS Safety Report 7337271-8 (Version None)
Quarter: 2011Q1

REPORT INFORMATION
  Report Type: 
  Country: None (occurrence: None)
  Receive Date: 20110308
  Receipt Date: 20110228
  Transmission Date: 20110831
  Serious: Yes (Hospitalization)
  Sender: FDA-Public Use
  Company Number: JP-ASTELLAS-2011JP000539

PATIENT
  Sex: Male

DRUGS (9)
  1. VESICARE [Suspect]
     Route: 048
  2. HOCHUUEKKITOU [Suspect]
     Route: 065
  3. DRUG FOR HEART FAILURE [Concomitant]
     Route: 065
  4. KIPRES [Suspect]
     Route: 048
  5. TAMSULOSIN HCL [Suspect]
     Route: 048
  6. CELECOXIB [Suspect]
     Indication: OSTEOARTHRITIS
     Dosage: 200 MG, UNKNOWN/D
     Route: 048
     Dates: start: 20071225, end: 20101208
  7. NORVASC [Suspect]
     Route: 048
  8. SPIRIVA [Suspect]
     Route: 065
  9. DICLOFENAC SODIUM [Concomitant]
     Dosage: 50 MG, PRN
     Route: 054
     Dates: start: 20080507, end: 20080716

REACTIONS (1)
  - CARDIAC FAILURE [None]
